FAERS Safety Report 9831003 (Version 2)
Quarter: 2014Q1

REPORT INFORMATION
  Report Type: Report from Study
  Country: BR (occurrence: BR)
  Receive Date: 20140120
  Receipt Date: 20140217
  Transmission Date: 20141002
  Serious: Yes (Death, Hospitalization)
  Sender: FDA-Public Use
  Company Number: PHHY2014BR006048

PATIENT
  Age: 44 Year
  Sex: Female
  Weight: 50 kg

DRUGS (3)
  1. TRILEPTAL [Suspect]
     Indication: CONVULSION
     Dosage: 05 ML, DAILY
     Route: 048
     Dates: start: 201212
  2. NEULEPTIL [Concomitant]
     Indication: MUSCLE DISORDER
     Dosage: 05 DRP, DAILY
     Route: 048
     Dates: start: 19680908
  3. GARDENAL [Concomitant]
     Indication: CONVULSION
     Dosage: 01 DF, DAILY
     Route: 048
     Dates: start: 19680908

REACTIONS (5)
  - Pneumonia [Fatal]
  - Aspiration bronchial [Unknown]
  - Skin discolouration [Unknown]
  - Malaise [Unknown]
  - Vomiting [Unknown]
